FAERS Safety Report 7615597-8 (Version None)
Quarter: 2011Q3

REPORT INFORMATION
  Report Type: 
  Country: None (occurrence: None)
  Receive Date: 20110708
  Receipt Date: 20110623
  Transmission Date: 20111222
  Serious: Yes (Death, Hospitalization)
  Sender: FDA-Public Use
  Company Number: TPA2010A00492

PATIENT
  Age: 90 Year
  Sex: Female
  Weight: 56.6996 kg

DRUGS (7)
  1. ATORVASTATIN [Concomitant]
  2. OMEPRAZOLE [Concomitant]
  3. PLAVIX [Concomitant]
  4. PIOGLITAZONE HCL [Suspect]
     Indication: CEREBROVASCULAR ACCIDENT PROPHYLAXIS
     Dosage: 1 IN 1 D, PER ORAL
     Route: 048
     Dates: start: 20090512, end: 20091207
  5. PIOGLITAZONE HCL [Suspect]
     Indication: CARDIOVASCULAR EVENT PROPHYLAXIS
     Dosage: 1 IN 1 D, PER ORAL
     Route: 048
     Dates: start: 20090512, end: 20091207
  6. NIFEDIPINE [Concomitant]
  7. ZOLPIDEM [Concomitant]

REACTIONS (5)
  - TIBIA FRACTURE [None]
  - DISEASE COMPLICATION [None]
  - PNEUMONIA ASPIRATION [None]
  - FALL [None]
  - HYPOXIA [None]
